FAERS Safety Report 16021246 (Version 1)
Quarter: 2019Q1

REPORT INFORMATION
  Report Type: Spontaneous
  Country: ES (occurrence: ES)
  Receive Date: 20190301
  Receipt Date: 20190301
  Transmission Date: 20190418
  Serious: Yes (Other)
  Sender: FDA-Public Use
  Company Number: ES-VIIV HEALTHCARE LIMITED-ES2019034713

PATIENT
  Age: 23 Year
  Sex: Male
  Weight: 71 kg

DRUGS (2)
  1. TRIUMEQ [Suspect]
     Active Substance: ABACAVIR SULFATE\DOLUTEGRAVIR SODIUM\LAMIVUDINE
     Indication: HIV INFECTION
     Dosage: 1 DF, QD
     Route: 048
     Dates: start: 20190129
  2. ESCITALOPRAM [Concomitant]
     Active Substance: ESCITALOPRAM OXALATE
     Indication: OBSESSIVE-COMPULSIVE DISORDER
     Dosage: 1 DF, QD
     Route: 065
     Dates: start: 20181026

REACTIONS (4)
  - Rash [Not Recovered/Not Resolved]
  - Tongue ulceration [Recovering/Resolving]
  - Arthralgia [Not Recovered/Not Resolved]
  - Balanoposthitis [Unknown]

NARRATIVE: CASE EVENT DATE: 20190202
